FAERS Safety Report 7582466 (Version 2)
Quarter: 2013Q2

REPORT INFORMATION
  Report Type: Spontaneous
  Country: FR (occurrence: FR)
  Receive Date: 20100913
  Receipt Date: 20130604
  Transmission Date: 20140414
  Serious: Yes (Death, Other)
  Sender: FDA-Public Use
  Company Number: FR-BRISTOL-MYERS SQUIBB COMPANY-15278096

PATIENT
  Age: 75 Year
  Sex: Female

DRUGS (1)
  1. TAXOL INJ [Suspect]
     Route: 042

REACTIONS (3)
  - Malignant neoplasm progression [Fatal]
  - Neuropathy peripheral [Recovered/Resolved]
  - Balance disorder [Not Recovered/Not Resolved]
